FAERS Safety Report 6615119-4 (Version None)
Quarter: 2010Q1

REPORT INFORMATION
  Report Type: 
  Country: None (occurrence: None)
  Receive Date: 20100305
  Receipt Date: 20100225
  Transmission Date: 20100710
  Serious: Yes (Hospitalization)
  Sender: FDA-Public Use
  Company Number: US-BRISTOL-MYERS SQUIBB COMPANY-14993588

PATIENT
  Sex: Female

DRUGS (3)
  1. IXEMPRA KIT [Suspect]
     Indication: BREAST CANCER
     Dates: start: 20100205
  2. CYMBALTA [Concomitant]
     Indication: PAIN
  3. NEURONTIN [Concomitant]
     Indication: PAIN

REACTIONS (2)
  - HYPOTENSION [None]
  - LUNG INFILTRATION [None]
